FAERS Safety Report 4264777-0 (Version None)
Quarter: 2004Q1

REPORT INFORMATION
  Report Type: 
  Country: None (occurrence: None)
  Receive Date: 20040102
  Receipt Date: 20031219
  Transmission Date: 20041129
  Serious: Yes (Hospitalization)
  Sender: FDA-Public Use
  Company Number: 2003118418

PATIENT
  Age: 22 Year
  Sex: Female
  Weight: 60 kg

DRUGS (7)
  1. ZOLOFT [Suspect]
     Indication: BORDERLINE PERSONALITY DISORDER
     Dosage: 100 MG, ORAL
     Route: 048
     Dates: start: 20030301, end: 20030923
  2. QUETIAPINE FUMARATE  (QUETIAPINE FUMARATE) [Suspect]
     Indication: BORDERLINE PERSONALITY DISORDER
     Dosage: 400 MG, ORAL
     Route: 048
     Dates: start: 20030301, end: 20030923
  3. LEVOTHYROXINE SODIUM [Concomitant]
  4. LORAZEPAM [Concomitant]
  5. PIPAMPERONE (PIPAMPERONE) [Concomitant]
  6. .... [Concomitant]
  7. OPIPRAMOL (OPIPRAMOL) [Concomitant]

REACTIONS (9)
  - ANTISOCIAL BEHAVIOUR [None]
  - BORDERLINE PERSONALITY DISORDER [None]
  - GRANULOCYTOPENIA [None]
  - HYPOTHYROIDISM [None]
  - MENTAL IMPAIRMENT [None]
  - OVERDOSE [None]
  - RESTLESSNESS [None]
  - SCAR [None]
  - SELF INJURIOUS BEHAVIOUR [None]
